FAERS Safety Report 6975781-3 (Version None)
Quarter: 2010Q3

REPORT INFORMATION
  Report Type: 
  Country: None (occurrence: None)
  Receive Date: 20100824
  Receipt Date: 20100630
  Transmission Date: 20110219
  Serious: No
  Sender: FDA-Public Use
  Company Number: 310998

PATIENT
  Sex: Female

DRUGS (1)
  1. VICTOZA [Suspect]
     Indication: INSULIN RESISTANT DIABETES
     Dosage: SUBCUTANEOUS
     Route: 058
     Dates: start: 20100630

REACTIONS (1)
  - NAUSEA [None]
